FAERS Safety Report 17114761 (Version 2)
Quarter: 2020Q1

REPORT INFORMATION
  Report Type: Report from Study
  Country: US (occurrence: US)
  Receive Date: 20191205
  Receipt Date: 20200213
  Transmission Date: 20200409
  Serious: Yes (Death)
  Sender: FDA-Public Use
  Company Number: US-ROCHE-2488054

PATIENT
  Age: 81 Year
  Sex: Female
  Weight: 82.4 kg

DRUGS (6)
  1. FAMOTIDINE. [Concomitant]
     Active Substance: FAMOTIDINE
     Indication: STRESS ULCER
     Route: 042
     Dates: start: 20191010, end: 20191111
  2. ACETAMINOPHEN. [Concomitant]
     Active Substance: ACETAMINOPHEN
     Indication: CEREBROVASCULAR ACCIDENT
     Route: 050
     Dates: start: 20191101, end: 20191101
  3. ASPIRIN [ACETYLSALICYLIC ACID] [Concomitant]
     Active Substance: ASPIRIN
     Indication: CEREBROVASCULAR ACCIDENT
     Route: 050
     Dates: start: 20191105, end: 20191107
  4. AMLODIPINE [Concomitant]
     Active Substance: AMLODIPINE BESYLATE
     Indication: HYPERTENSION
     Route: 050
     Dates: start: 20191102, end: 20191107
  5. TENECTEPLASE [Suspect]
     Active Substance: TENECTEPLASE
     Indication: THROMBOLYSIS
     Dosage: A SINGLE BOLUS DOSE SHOULD BE ADMINISTERED OVER 5 SECONDS?LAST DOSE OF BLINDED TENECTEPLASE PRIOR TO
     Route: 042
  6. NICARDIPINE [Concomitant]
     Active Substance: NICARDIPINE
     Indication: CEREBROVASCULAR ACCIDENT
     Route: 042
     Dates: start: 20191031, end: 20191111

REACTIONS (1)
  - Death [Fatal]

NARRATIVE: CASE EVENT DATE: 20191112
